FAERS Safety Report 18915558 (Version 1)
Quarter: 2021Q1

REPORT INFORMATION
  Report Type: Spontaneous
  Country: US (occurrence: US)
  Receive Date: 20210219
  Receipt Date: 20210219
  Transmission Date: 20210420
  Serious: No
  Sender: FDA-Public Use
  Company Number: US-BAYER-2021-071760

PATIENT
  Age: 9 Year

DRUGS (1)
  1. MIRALAX [Suspect]
     Active Substance: POLYETHYLENE GLYCOL 3350
     Dosage: 2 OUNCE OF THIS PRODUCT, 2 OUNCE OF THE LIQUID
     Route: 048

REACTIONS (2)
  - Expired product administered [Unknown]
  - Incorrect dose administered [None]
